FAERS Safety Report 9881805 (Version 5)
Quarter: 2017Q4

REPORT INFORMATION
  Report Type: Report from Study
  Country: FI (occurrence: FI)
  Receive Date: 20140207
  Receipt Date: 20171208
  Transmission Date: 20180321
  Serious: Yes (Other)
  Sender: FDA-Public Use
  Company Number: FI-AMGEN-FINNI2014008420

PATIENT
  Age: 73 Year
  Sex: Male

DRUGS (4)
  1. DENOSUMAB [Suspect]
     Active Substance: DENOSUMAB
     Indication: PRODUCT USED FOR UNKNOWN INDICATION
     Dosage: UNK
     Route: 065
     Dates: end: 20130817
  2. ZOMETA [Concomitant]
     Active Substance: ZOLEDRONIC ACID
     Dosage: 4 MG, Q4WK
     Route: 042
     Dates: start: 201004, end: 2012
  3. THYROXIN [Concomitant]
     Active Substance: LEVOTHYROXINE
     Dosage: 0.1 MG, QD
  4. FURESIS [Concomitant]
     Active Substance: FUROSEMIDE
     Dosage: 20 MG, BID

REACTIONS (1)
  - Osteonecrosis of jaw [Recovered/Resolved]

NARRATIVE: CASE EVENT DATE: 20140425
